FAERS Safety Report 5373053-4 (Version None)
Quarter: 2007Q2

REPORT INFORMATION
  Report Type: 
  Country: None (occurrence: None)
  Receive Date: 20070619
  Receipt Date: 20070328
  Transmission Date: 20071010
  Serious: No
  Sender: FDA-Public Use
  Company Number: 2007US000913

PATIENT
  Age: 52 Year
  Sex: Male

DRUGS (2)
  1. VESICARE [Suspect]
     Indication: HYPERTONIC BLADDER
     Dosage: 10 MG, UNK, ORAL
     Route: 048
     Dates: start: 20070321, end: 20070324
  2. PROTONIX [Concomitant]

REACTIONS (2)
  - DRY THROAT [None]
  - THROAT IRRITATION [None]
